FAERS Safety Report 4965854-9 (Version None)
Quarter: 2006Q2

REPORT INFORMATION
  Report Type: 
  Country: None (occurrence: None)
  Receive Date: 20060405
  Receipt Date: 20060405
  Transmission Date: 20061013
  Serious: No
  Sender: FDA-Public Use
  Company Number: None

PATIENT
  Sex: Male
  Weight: 21.3191 kg

DRUGS (1)
  1. AUGMENTIN '125' [Suspect]
     Indication: HORDEOLUM
     Dosage: 1 1/2 TSP BID PO
     Route: 048
     Dates: start: 20060330, end: 20060403

REACTIONS (4)
  - CRYING [None]
  - FEAR [None]
  - HALLUCINATION, VISUAL [None]
  - TREMOR [None]
